FAERS Safety Report 23941272 (Version 4)
Quarter: 2025Q2

REPORT INFORMATION
  Report Type: Spontaneous
  Country: DE (occurrence: DE)
  Receive Date: 20240605
  Receipt Date: 20250610
  Transmission Date: 20250717
  Serious: Yes (Life-Threatening, Hospitalization, Other)
  Sender: AUROBINDO
  Company Number: DE-MLMSERVICE-20240513-PI056560-00330-1

PATIENT
  Age: 18 Year
  Sex: Female
  Weight: 55 kg

DRUGS (1)
  1. VENLAFAXINE HYDROCHLORIDE [Suspect]
     Active Substance: VENLAFAXINE HYDROCHLORIDE
     Indication: Depression
     Route: 048
     Dates: start: 20230110

REACTIONS (20)
  - Coagulopathy [Unknown]
  - Lactic acidosis [Unknown]
  - Circulatory collapse [Unknown]
  - Compartment syndrome [Unknown]
  - Small intestinal perforation [Unknown]
  - Intestinal ischaemia [Unknown]
  - Peripheral ischaemia [Unknown]
  - Rhabdomyolysis [Unknown]
  - Cardiac arrest [Recovering/Resolving]
  - Cardio-respiratory arrest [Recovering/Resolving]
  - Multiple organ dysfunction syndrome [Recovered/Resolved]
  - Renal failure [Recovering/Resolving]
  - Ventricular hypokinesia [Recovered/Resolved]
  - Hepatic failure [Recovering/Resolving]
  - Cardiogenic shock [Recovered/Resolved]
  - Left ventricular dysfunction [Recovered/Resolved]
  - Toxicity to various agents [Recovering/Resolving]
  - Suicide attempt [Unknown]
  - Intentional overdose [Recovering/Resolving]
  - Mydriasis [Unknown]
